FAERS Safety Report 4732106-1 (Version None)
Quarter: 2005Q3

REPORT INFORMATION
  Report Type: 
  Country: None (occurrence: None)
  Receive Date: 20050725
  Receipt Date: 19940124
  Transmission Date: 20060218
  Serious: Yes (Hospitalization)
  Sender: FDA-Public Use
  Company Number: 940034

PATIENT
  Age: 65 Year
  Sex: Male

DRUGS (3)
  1. MS CONTIN [Suspect]
     Indication: PAIN
     Dosage: 30 MG, BID, ORAL
     Route: 048
  2. ATIVAN [Suspect]
     Indication: PAIN
     Dosage: 2 MG, Q6H, ORAL
     Route: 048
  3. PERCOCET [Suspect]
     Indication: PAIN
     Dosage: 1 TABLET, PRN, ORAL
     Route: 048

REACTIONS (1)
  - COORDINATION ABNORMAL [None]
